FAERS Safety Report 11975593 (Version 1)
Quarter: 2016Q1

REPORT INFORMATION
  Report Type: Spontaneous
  Country: CA (occurrence: CA)
  Receive Date: 20160129
  Receipt Date: 20160129
  Transmission Date: 20160526
  Serious: Yes (Disabling)
  Sender: FDA-Public Use
  Company Number: CA-ASTRAZENECA-2016SE08755

PATIENT
  Age: 77 Year
  Sex: Male
  Weight: 82 kg

DRUGS (12)
  1. TUDORZA GENUAIR [Suspect]
     Active Substance: ACLIDINIUM BROMIDE
     Indication: CHRONIC OBSTRUCTIVE PULMONARY DISEASE
     Dosage: 60 ACTUATIONS
     Route: 055
  2. ONGLYZA [Concomitant]
     Active Substance: SAXAGLIPTIN HYDROCHLORIDE
  3. TIAZAC XC [Concomitant]
     Active Substance: DILTIAZEM HYDROCHLORIDE
  4. NITRO [Concomitant]
     Active Substance: NITROGLYCERIN
     Dosage: SUBLINGUAL SPRAY
  5. TUDORZA GENUAIR [Suspect]
     Active Substance: ACLIDINIUM BROMIDE
     Indication: CHRONIC OBSTRUCTIVE PULMONARY DISEASE
     Dosage: 2 EVERY 1 DAY, 30 ACTUATIONS
     Route: 055
  6. COVERSYL [Concomitant]
     Active Substance: PERINDOPRIL
  7. METOPROLOL. [Concomitant]
     Active Substance: METOPROLOL
  8. PRADAXA [Concomitant]
     Active Substance: DABIGATRAN ETEXILATE MESYLATE
  9. ROSUVASTATIN [Concomitant]
     Active Substance: ROSUVASTATIN
  10. GLYBURIDE. [Concomitant]
     Active Substance: GLYBURIDE
  11. DEXILANT [Concomitant]
     Active Substance: DEXLANSOPRAZOLE
  12. PRO-AAS EC [Concomitant]
     Dosage: 80

REACTIONS (2)
  - Ear discomfort [Recovered/Resolved]
  - Hypoacusis [Recovered/Resolved]
